FAERS Safety Report 21809954 (Version 1)
Quarter: 2023Q1

REPORT INFORMATION
  Report Type: Spontaneous
  Country: RO (occurrence: RO)
  Receive Date: 20230103
  Receipt Date: 20230103
  Transmission Date: 20230417
  Serious: Yes (Other)
  Sender: FDA-Public Use
  Company Number: RO-MYLANLABS-2022M1140039

PATIENT
  Age: 59 Year
  Sex: Female

DRUGS (1)
  1. RITONAVIR [Suspect]
     Active Substance: RITONAVIR
     Indication: Vascular resistance systemic
     Dosage: UNK
     Route: 065
     Dates: start: 2016

REACTIONS (1)
  - Hepatocellular carcinoma [Unknown]
